FAERS Safety Report 21886728 (Version 1)
Quarter: 2023Q1

REPORT INFORMATION
  Report Type: Spontaneous
  Country: US (occurrence: None)
  Receive Date: 20230119
  Receipt Date: 20230119
  Transmission Date: 20230418
  Serious: No
  Sender: FDA-Public Use
  Company Number: None

PATIENT
  Age: 66 Year
  Sex: Female
  Weight: 78.75 kg

DRUGS (6)
  1. DUPIXENT [Suspect]
     Active Substance: DUPILUMAB
     Indication: Nasal polyps
     Dosage: OTHER QUANTITY : 1 INJECTION(S);?OTHER FREQUENCY : EVERY 2 WEEKS;?OTHER ROUTE : SUBCUTANEOUS INJECTI
     Route: 058
     Dates: start: 20200821, end: 20230101
  2. DUPIXENT [Suspect]
     Active Substance: DUPILUMAB
     Indication: Sinusitis
  3. CANDESARTAN [Concomitant]
     Active Substance: CANDESARTAN
  4. ROSUVASTATIN [Concomitant]
     Active Substance: ROSUVASTATIN
  5. VITAMIN D3 [Concomitant]
     Active Substance: CHOLECALCIFEROL
  6. FISH OIL [Concomitant]
     Active Substance: FISH OIL

REACTIONS (4)
  - Alopecia [None]
  - Pruritus [None]
  - Rash [None]
  - Rash [None]

NARRATIVE: CASE EVENT DATE: 20221215
